FAERS Safety Report 9374035 (Version 1)
Quarter: 2013Q2

REPORT INFORMATION
  Report Type: Spontaneous
  Country: GB (occurrence: GB)
  Receive Date: 20130628
  Receipt Date: 20130628
  Transmission Date: 20140414
  Serious: Yes (Hospitalization, Disabling)
  Sender: FDA-Public Use
  Company Number: GB-ROCHE-1242352

PATIENT
  Age: 53 Year
  Sex: Female
  Weight: 105 kg

DRUGS (12)
  1. ORLISTAT [Suspect]
     Indication: WEIGHT DECREASED
     Route: 048
     Dates: start: 201211, end: 201304
  2. ADALAT [Concomitant]
  3. ASPIRIN [Concomitant]
  4. DOXAZOSIN [Concomitant]
  5. GLICLAZIDE [Concomitant]
  6. LANSOPRAZOLE [Concomitant]
  7. METFORMIN [Concomitant]
  8. OXYBUTYNIN [Concomitant]
  9. PRAVASTATIN [Concomitant]
  10. PROCYCLIDINE [Concomitant]
  11. RAMIPRIL [Concomitant]
  12. RISPERIDONE [Concomitant]

REACTIONS (4)
  - Renal failure acute [Not Recovered/Not Resolved]
  - Crystal nephropathy [Not Recovered/Not Resolved]
  - Malaise [Not Recovered/Not Resolved]
  - Kidney fibrosis [Not Recovered/Not Resolved]
